FAERS Safety Report 11544879 (Version 1)
Quarter: 2015Q3

REPORT INFORMATION
  Report Type: Spontaneous
  Country: DE (occurrence: DE)
  Receive Date: 20150924
  Receipt Date: 20150924
  Transmission Date: 20151125
  Serious: Yes (Other)
  Sender: FDA-Public Use
  Company Number: DE-WATSON-2015-19955

PATIENT
  Sex: Female
  Weight: 3.8 kg

DRUGS (9)
  1. CITALOPRAM [Suspect]
     Active Substance: CITALOPRAM HYDROBROMIDE
     Indication: DEPRESSION
     Dosage: 10 MG, DAILY
     Route: 064
     Dates: start: 20140902, end: 20150611
  2. CITALOPRAM [Suspect]
     Active Substance: CITALOPRAM HYDROBROMIDE
     Dosage: 15 MG, DAILY
     Route: 064
     Dates: start: 20140902, end: 20150611
  3. CITALOPRAM [Suspect]
     Active Substance: CITALOPRAM HYDROBROMIDE
     Dosage: 20 MG, DAILY TILL WEEK 27
     Route: 064
     Dates: start: 20140902, end: 20150611
  4. SOBELIN /00166002/ [Suspect]
     Active Substance: CLINDAMYCIN HYDROCHLORIDE
     Indication: VAGINAL PH INCREASED
     Dosage: UNK, UNKNOWN
     Route: 064
  5. FOLSAEURE [Concomitant]
     Active Substance: FOLIC ACID
     Indication: PROPHYLAXIS OF NEURAL TUBE DEFECT
     Dosage: UNK, UNKNOWN
     Route: 064
  6. CEFUROXIME. [Concomitant]
     Active Substance: CEFUROXIME
     Indication: URINARY TRACT INFECTION BACTERIAL
     Dosage: 500 MG, BID
     Route: 064
     Dates: start: 20150513, end: 20150522
  7. AMPICILLIN (UNKNOWN) [Suspect]
     Active Substance: AMPICILLIN
     Indication: STREPTOCOCCUS TEST POSITIVE
     Dosage: UNK, UNKNOWN
     Route: 064
  8. AMPICILLIN (UNKNOWN) [Suspect]
     Active Substance: AMPICILLIN
     Indication: LISTERIOSIS
     Dosage: 1000 MG, TID
     Route: 064
     Dates: start: 20150324, end: 20150405
  9. CITALOPRAM [Suspect]
     Active Substance: CITALOPRAM HYDROBROMIDE
     Dosage: 10 MG, DAILY TILL WEEK 16
     Route: 064
     Dates: start: 20140902, end: 20150611

REACTIONS (5)
  - Caesarean section [None]
  - Maternal drugs affecting foetus [None]
  - Spinal muscular atrophy [Not Recovered/Not Resolved]
  - Hypotonia [None]
  - Congenital lymphoedema [Unknown]
